FAERS Safety Report 4309457-8 (Version None)
Quarter: 2004Q1

REPORT INFORMATION
  Report Type: 
  Country: None (occurrence: None)
  Receive Date: 20040301
  Receipt Date: 20040216
  Transmission Date: 20041129
  Serious: Yes (Hospitalization, Other)
  Sender: FDA-Public Use
  Company Number: 2004010493

PATIENT
  Age: 84 Year
  Sex: Male

DRUGS (13)
  1. ZOXAN LP (DOXAZOSIN) [Suspect]
     Indication: ILL-DEFINED DISORDER
     Dosage: 4 MG ORAL
     Route: 048
     Dates: start: 20011115, end: 20031229
  2. LEVOFLOXACIN [Suspect]
     Indication: BRONCHITIS
     Dosage: ORAL
     Route: 048
     Dates: start: 20031225
  3. SULPIRIDE (SULPIRIDE) [Suspect]
     Indication: ILL-DEFINED DISORDER
     Dosage: 50 MG ORAL
     Route: 048
     Dates: start: 20011115, end: 20031229
  4. TRIMEBUTINE (TRIMEBUTINE) [Concomitant]
  5. ZOPICLONE (ZOPICLONE) [Concomitant]
  6. LANSOPRAZOLE [Concomitant]
  7. POLY-KARAYA (STERCULIA, POLYVIDONE) [Concomitant]
  8. NULYTELY (SODIUM BICARBONATE, POTASSIUM CHLORIDE, SODIUM CHLORIDE, MAC [Concomitant]
  9. EDUCTYL (SODIUM BICARNONATE, POTASSIUM BITARTRATE) [Concomitant]
  10. AMBROXOL HYDROCHLORIDE (AMBROXOL HYDROCHLORIDE) [Concomitant]
  11. ZOLPIDEM TARTRATE [Concomitant]
  12. RHINOFLUIMUCIL (TUAMINOHEPTANE, ACETYLCYSTEINE, BENZALKONIUM CHLORIDE) [Concomitant]
  13. CALYPTOL (CINEOLE, ROSMARINUS OFFICINALE OIL, TERPINEOL, PINE OIL,THYM [Concomitant]

REACTIONS (6)
  - ATRIOVENTRICULAR BLOCK SECOND DEGREE [None]
  - DEPRESSED LEVEL OF CONSCIOUSNESS [None]
  - FALL [None]
  - MALAISE [None]
  - ORTHOSTATIC HYPOTENSION [None]
  - SYNCOPE [None]
